FAERS Safety Report 11757127 (Version 1)
Quarter: 2015Q4

REPORT INFORMATION
  Report Type: Spontaneous
  Country: US (occurrence: US)
  Receive Date: 20151120
  Receipt Date: 20151120
  Transmission Date: 20160304
  Serious: No
  Sender: FDA-Public Use
  Company Number: US-ASTRAZENECA-2015SF11750

PATIENT
  Age: 61 Year
  Sex: Female
  Weight: 59 kg

DRUGS (1)
  1. NEXIUM 24HR [Suspect]
     Active Substance: ESOMEPRAZOLE MAGNESIUM
     Indication: DYSPEPSIA
     Route: 048

REACTIONS (3)
  - Gastrooesophageal reflux disease [Not Recovered/Not Resolved]
  - Dyspepsia [Not Recovered/Not Resolved]
  - Product use issue [Unknown]
